FAERS Safety Report 17437138 (Version 1)
Quarter: 2020Q1

REPORT INFORMATION
  Report Type: Spontaneous
  Country: FR (occurrence: FR)
  Receive Date: 20200219
  Receipt Date: 20200219
  Transmission Date: 20200409
  Serious: Yes (Hospitalization)
  Sender: FDA-Public Use
  Company Number: FR-MYLANLABS-2020M1018048

PATIENT
  Age: 51 Year
  Sex: Female
  Weight: 55.3 kg

DRUGS (5)
  1. AVASTIN [Suspect]
     Active Substance: BEVACIZUMAB
     Indication: BRENNER TUMOUR
     Dosage: INCONNUE
     Route: 041
     Dates: start: 20190722, end: 20191014
  2. ALPRAZOLAM. [Concomitant]
     Active Substance: ALPRAZOLAM
     Dosage: 0.5 MILLIGRAM, QD
     Route: 048
  3. FUROSEMIDE. [Concomitant]
     Active Substance: FUROSEMIDE
     Dosage: 40 MILLIGRAM, QD
     Route: 048
  4. GEMCITABINE. [Suspect]
     Active Substance: GEMCITABINE
     Indication: BRENNER TUMOUR
     Dosage: INCONNUE
     Route: 041
     Dates: start: 20190722, end: 20191014
  5. LAROXYL [Concomitant]
     Active Substance: AMITRIPTYLINE HYDROCHLORIDE
     Dosage: 15 GTT DROPS, QD
     Route: 048

REACTIONS (1)
  - Thrombotic microangiopathy [Recovering/Resolving]

NARRATIVE: CASE EVENT DATE: 20191028
